FAERS Safety Report 24556078 (Version 1)
Quarter: 2024Q4

REPORT INFORMATION
  Report Type: Other
  Country: CA (occurrence: CA)
  Receive Date: 20241028
  Receipt Date: 20241028
  Transmission Date: 20250115
  Serious: Yes (Hospitalization)
  Sender: BIOCON
  Company Number: CA-BIOCON BIOLOGICS LIMITED-BBL2024007857

PATIENT

DRUGS (1)
  1. OGIVRI [Suspect]
     Active Substance: TRASTUZUMAB-DKST
     Indication: Ovarian epithelial cancer
     Dosage: 6 MG/KG 1 EVERY 21 DAYS (POWDER FOR SOLUTION INTRAVENOUS)
     Route: 042

REACTIONS (2)
  - Intensive care [Unknown]
  - Therapy non-responder [Unknown]
